FAERS Safety Report 15231629 (Version 1)
Quarter: 2018Q3

REPORT INFORMATION
  Report Type: Spontaneous
  Country: US (occurrence: US)
  Receive Date: 20180802
  Receipt Date: 20180802
  Transmission Date: 20181010
  Serious: No
  Sender: FDA-Public Use
  Company Number: US-GLAXOSMITHKLINE-US2018133432

PATIENT
  Sex: Female

DRUGS (2)
  1. ACITRETIN. [Suspect]
     Active Substance: ACITRETIN
     Indication: ICHTHYOSIS
     Dosage: 50 MG, QD
     Route: 048
  2. SORIATANE [Suspect]
     Active Substance: ACITRETIN
     Indication: ICHTHYOSIS
     Route: 048

REACTIONS (5)
  - Skin disorder [Unknown]
  - Drug ineffective [Unknown]
  - Skin exfoliation [Unknown]
  - Product use in unapproved indication [Unknown]
  - Product substitution issue [Unknown]
